FAERS Safety Report 10553894 (Version 2)
Quarter: 2014Q4

REPORT INFORMATION
  Report Type: Report from Study
  Country: BR (occurrence: BR)
  Receive Date: 20141030
  Receipt Date: 20141114
  Transmission Date: 20150529
  Serious: Yes (Other)
  Sender: FDA-Public Use
  Company Number: PHHY2014BR141686

PATIENT
  Sex: Female
  Weight: 71 kg

DRUGS (3)
  1. OSTEOPAN [Concomitant]
     Indication: OSTEOPOROSIS
     Dosage: 1 MG, QMO
     Route: 048
     Dates: start: 20141027
  2. DIOVAN AMLO FIX [Suspect]
     Active Substance: AMLODIPINE\VALSARTAN
     Indication: HYPERTENSION
     Dosage: 1 DF, QD
     Route: 048
  3. CALCIO CON VITAMINA D [Concomitant]
     Indication: OSTEOPOROSIS
     Dosage: 1 DF, QD
     Route: 048

REACTIONS (1)
  - Dementia Alzheimer^s type [Not Recovered/Not Resolved]
